FAERS Safety Report 7007801-4 (Version None)
Quarter: 2010Q3

REPORT INFORMATION
  Report Type: 
  Country: None (occurrence: None)
  Receive Date: 20100922
  Receipt Date: 20100920
  Transmission Date: 20110219
  Serious: Yes (Hospitalization)
  Sender: FDA-Public Use
  Company Number: US-BRISTOL-MYERS SQUIBB COMPANY-15139157

PATIENT
  Age: 69 Year
  Sex: Female
  Weight: 45 kg

DRUGS (13)
  1. ABILIFY [Suspect]
     Indication: DEPRESSION
     Dosage: STARTED:APR10
     Route: 048
     Dates: start: 20100219
  2. PREDNISONE [Concomitant]
  3. ADVAIR DISKUS 100/50 [Concomitant]
  4. ZOLOFT [Concomitant]
  5. THEOPHYLLINE [Concomitant]
  6. DIAZEPAM [Concomitant]
  7. LEVOTHYROXINE SODIUM [Concomitant]
  8. ASACOL [Concomitant]
  9. ALBUTEROL [Concomitant]
  10. OXYCODONE HCL [Concomitant]
  11. OMEPRAZOLE [Concomitant]
  12. DIPHENOXYLATE [Concomitant]
  13. ATROPINE [Concomitant]

REACTIONS (6)
  - ARTHRALGIA [None]
  - BLOOD POTASSIUM DECREASED [None]
  - BONE PAIN [None]
  - HYPOAESTHESIA [None]
  - INTERMITTENT CLAUDICATION [None]
  - MYALGIA [None]
